FAERS Safety Report 24025971 (Version 1)
Quarter: 2024Q2

REPORT INFORMATION
  Report Type: Spontaneous
  Country: CN (occurrence: CN)
  Receive Date: 20240628
  Receipt Date: 20240628
  Transmission Date: 20240715
  Serious: Yes (Other)
  Sender: FDA-Public Use
  Company Number: CN-BEIGENE-BGN-2024-009521

PATIENT

DRUGS (6)
  1. TISLELIZUMAB [Suspect]
     Active Substance: TISLELIZUMAB
     Indication: Small cell lung cancer metastatic
     Dosage: 20 MILLILITER
     Route: 041
     Dates: start: 20240419
  2. TISLELIZUMAB [Suspect]
     Active Substance: TISLELIZUMAB
     Dosage: 20 MILLILITER
     Route: 041
     Dates: start: 20240514
  3. CISPLATIN [Suspect]
     Active Substance: CISPLATIN
     Indication: Small cell lung cancer metastatic
     Dosage: 40 MILLIGRAM, D1-3
     Route: 041
     Dates: start: 20240419
  4. CISPLATIN [Suspect]
     Active Substance: CISPLATIN
     Dosage: 40 MILLIGRAM, D1-3
     Route: 041
     Dates: start: 20240514
  5. ETOPOSIDE [Suspect]
     Active Substance: ETOPOSIDE
     Indication: Small cell lung cancer metastatic
     Dosage: 0.1 GRAM, D1-3
     Route: 041
     Dates: start: 20240419
  6. ETOPOSIDE [Suspect]
     Active Substance: ETOPOSIDE
     Dosage: 0.1 GRAM, D1-3
     Route: 041
     Dates: start: 20240514

REACTIONS (2)
  - Dermatitis exfoliative [Unknown]
  - Drug eruption [Unknown]

NARRATIVE: CASE EVENT DATE: 20240611
